FAERS Safety Report 15535664 (Version 1)
Quarter: 2018Q4

REPORT INFORMATION
  Report Type: Spontaneous
  Country: US (occurrence: US)
  Receive Date: 20181022
  Receipt Date: 20181022
  Transmission Date: 20190205
  Serious: No
  Sender: FDA-Public Use
  Company Number: US-PFIZER INC-2018420574

PATIENT
  Sex: Female

DRUGS (1)
  1. PREMARIN [Suspect]
     Active Substance: ESTROGENS, CONJUGATED
     Dosage: UNK (SUPPOSED TO USE THE CREAM 3 TIMES A WEEK)

REACTIONS (2)
  - Urinary tract infection [Unknown]
  - Intentional product misuse [Unknown]
